FAERS Safety Report 22365806 (Version 1)
Quarter: 2023Q2

REPORT INFORMATION
  Report Type: Spontaneous
  Country: CO (occurrence: CO)
  Receive Date: 20230525
  Receipt Date: 20230525
  Transmission Date: 20230722
  Serious: Yes (Other)
  Sender: FDA-Public Use
  Company Number: CO-002147023-NVSC2023CO118045

PATIENT
  Age: 81 Year
  Sex: Male
  Weight: 44 kg

DRUGS (1)
  1. COSENTYX [Suspect]
     Active Substance: SECUKINUMAB
     Indication: Psoriasis
     Dosage: 300 MG, QMO
     Route: 058
     Dates: start: 20230401, end: 20230420

REACTIONS (1)
  - Non-Hodgkin^s lymphoma [Unknown]

NARRATIVE: CASE EVENT DATE: 20230405
